FAERS Safety Report 14091909 (Version 1)
Quarter: 2017Q4

REPORT INFORMATION
  Report Type: Report from Study
  Country: US (occurrence: US)
  Receive Date: 20171016
  Receipt Date: 20171016
  Transmission Date: 20180321
  Serious: Yes (Other)
  Sender: FDA-Public Use
  Company Number: US-ROCHE-2007966

PATIENT

DRUGS (1)
  1. RITUXIMAB. [Suspect]
     Active Substance: RITUXIMAB
     Indication: ACUTE GRAFT VERSUS HOST DISEASE
     Dosage: DOSE AS PER PROTOCOL: PATIENTS RECEIVE RITUXIMAB IV ON DAYS -6, 1, 8, AND 15 AND ANTI-THYMOCYTE GLOB
     Route: 042

REACTIONS (4)
  - Hypokalaemia [Unknown]
  - Hyperglycaemia [Unknown]
  - Rash [Unknown]
  - Hyponatraemia [Unknown]

NARRATIVE: CASE EVENT DATE: 20100730
